FAERS Safety Report 6368702-8 (Version None)
Quarter: 2009Q3

REPORT INFORMATION
  Report Type: 
  Country: None (occurrence: None)
  Receive Date: 20090917
  Receipt Date: 20090917
  Transmission Date: 20100115
  Serious: Yes (Life-Threatening)
  Sender: FDA-Public Use
  Company Number: None

PATIENT
  Age: 59 Year
  Sex: Male
  Weight: 79.3795 kg

DRUGS (1)
  1. UROXATRAL [Suspect]
     Indication: PROSTATOMEGALY
     Dosage: 1 TABLET PER DAY UNK
     Dates: start: 20090901, end: 20090906

REACTIONS (1)
  - DEPRESSION [None]
